FAERS Safety Report 5652152-3 (Version None)
Quarter: 2008Q1

REPORT INFORMATION
  Report Type: 
  Country: None (occurrence: None)
  Receive Date: 20080304
  Receipt Date: 20080218
  Transmission Date: 20080703
  Serious: Yes (Other)
  Sender: FDA-Public Use
  Company Number: E2090-00391-SPO-AT

PATIENT
  Age: 17 Year
  Sex: Male
  Weight: 40 kg

DRUGS (9)
  1. ZONEGRAN [Suspect]
     Indication: LENNOX-GASTAUT SYNDROME
     Dosage: 50 MG OR 300 MG, 1 IN 1 D, ORAL
     Route: 048
     Dates: end: 20080201
  2. ZONEGRAN [Suspect]
     Indication: LENNOX-GASTAUT SYNDROME
     Dosage: 50 MG OR 300 MG, 1 IN 1 D, ORAL
     Route: 048
     Dates: start: 20070312
  3. TOPIRAMAT (TOPIRAMATE) [Concomitant]
  4. VALPROATE SODIUM [Concomitant]
  5. PANTOPRAZOLE SODIUM [Concomitant]
  6. MELATONIN (MELATONIN) [Concomitant]
  7. BURONIL (MELPERONE HYDROCHLORIDE) [Concomitant]
  8. FRISIUM (CLOBAZAM) [Concomitant]
  9. LORAZEPAM [Concomitant]

REACTIONS (3)
  - NO THERAPEUTIC RESPONSE [None]
  - RESTLESSNESS [None]
  - SCREAMING [None]
